FAERS Safety Report 5600472-0 (Version None)
Quarter: 2008Q1

REPORT INFORMATION
  Report Type: 
  Country: None (occurrence: None)
  Receive Date: 20080123
  Receipt Date: 20080114
  Transmission Date: 20080703
  Serious: Yes (Other)
  Sender: FDA-Public Use
  Company Number: US-RANBAXY-2008US-12660

PATIENT

DRUGS (4)
  1. FLUCONAZOLE [Suspect]
     Indication: RENAL IMPAIRMENT
     Dosage: 150 MG, UNK
     Dates: start: 20080109, end: 20080114
  2. PLAVIX [Concomitant]
     Indication: DRUG USE FOR UNKNOWN INDICATION
  3. VITOCIN [Concomitant]
     Indication: DRUG USE FOR UNKNOWN INDICATION
  4. MACRODENTONE [Concomitant]
     Indication: DRUG USE FOR UNKNOWN INDICATION

REACTIONS (4)
  - ACCIDENTAL OVERDOSE [None]
  - CHILLS [None]
  - NAUSEA [None]
  - PERIPHERAL COLDNESS [None]
